FAERS Safety Report 5567009-6 (Version None)
Quarter: 2007Q4

REPORT INFORMATION
  Report Type: 
  Country: None (occurrence: None)
  Receive Date: 20071219
  Receipt Date: 20071217
  Transmission Date: 20080405
  Serious: Yes (Death, Hospitalization)
  Sender: FDA-Public Use
  Company Number: SI-ELI_LILLY_AND_COMPANY-SI200712000628

PATIENT
  Sex: Female
  Weight: 70 kg

DRUGS (3)
  1. LISPRO [Suspect]
     Indication: DIABETES MELLITUS
     Dosage: 24-8-10 IU/KG, DAILY (1/D)
     Route: 058
     Dates: start: 20031126
  2. EDICIN [Concomitant]
     Indication: BRONCHITIS
     Dates: start: 20040908
  3. CEFOTAXIME [Concomitant]
     Indication: BRONCHITIS
     Dates: start: 20070904

REACTIONS (2)
  - CARDIAC FAILURE [None]
  - CARDIOGENIC SHOCK [None]
